FAERS Safety Report 4448528-2 (Version None)
Quarter: 2004Q3

REPORT INFORMATION
  Report Type: 
  Country: None (occurrence: None)
  Receive Date: 20040908
  Receipt Date: 20040823
  Transmission Date: 20050211
  Serious: Yes (Hospitalization)
  Sender: FDA-Public Use
  Company Number: 2004UW18039

PATIENT
  Sex: Male

DRUGS (2)
  1. CRESTOR [Suspect]
     Dosage: 20 MG DAILY PO
     Route: 048
  2. LOPID [Concomitant]

REACTIONS (2)
  - INFLUENZA LIKE ILLNESS [None]
  - RENAL FAILURE [None]
